FAERS Safety Report 13732638 (Version 1)
Quarter: 2017Q3

REPORT INFORMATION
  Report Type: Report from Study
  Country: US (occurrence: US)
  Receive Date: 20170707
  Receipt Date: 20170707
  Transmission Date: 20171127
  Serious: Yes (Death, Hospitalization, Other)
  Sender: FDA-Public Use
  Company Number: US-BRISTOL-MYERS SQUIBB COMPANY-BMS-2017-060588

PATIENT
  Age: 63 Year
  Sex: Female
  Weight: 75.8 kg

DRUGS (1)
  1. NIVOLUMAB [Suspect]
     Active Substance: NIVOLUMAB
     Indication: OVARIAN EPITHELIAL CANCER
     Dosage: 3 MG/KG, Q2WK
     Route: 042
     Dates: start: 20170614, end: 20170614

REACTIONS (1)
  - Cardiac arrest [Fatal]
